FAERS Safety Report 18352244 (Version 2)
Quarter: 2020Q4

REPORT INFORMATION
  Report Type: Spontaneous
  Country: NO (occurrence: NO)
  Receive Date: 20201006
  Receipt Date: 20201026
  Transmission Date: 20210114
  Serious: Yes (Other)
  Sender: FDA-Public Use
  Company Number: NO-JNJFOC-20200926203

PATIENT
  Age: 99 Year
  Sex: Female

DRUGS (3)
  1. RIVAROXABAN [Suspect]
     Active Substance: RIVAROXABAN
     Route: 048
     Dates: start: 20200914
  2. RIVAROXABAN [Suspect]
     Active Substance: RIVAROXABAN
     Indication: ATRIAL FIBRILLATION
     Dosage: 20 MG, UNK
     Route: 048
     Dates: start: 2018
  3. ESCITALOPRAM [Concomitant]
     Active Substance: ESCITALOPRAM OXALATE
     Indication: COGNITIVE DISORDER
     Dosage: 5 MG

REACTIONS (5)
  - Limb injury [Unknown]
  - Bleeding time prolonged [Recovered/Resolved]
  - Traumatic haemorrhage [Unknown]
  - Fall [Unknown]
  - Epistaxis [Unknown]

NARRATIVE: CASE EVENT DATE: 202009
